FAERS Safety Report 8071239-1 (Version None)
Quarter: 2012Q1

REPORT INFORMATION
  Report Type: 
  Country: None (occurrence: None)
  Receive Date: 20120125
  Receipt Date: 20120120
  Transmission Date: 20120608
  Serious: Yes (Hospitalization, Other)
  Sender: FDA-Public Use
  Company Number: PHHY2012ZA005614

PATIENT
  Sex: Female

DRUGS (3)
  1. EVENING PRIMROSE OIL [Concomitant]
  2. CALCIUM [Concomitant]
  3. VALSARTAN  AND HYDROCHLOROTHIAZIDE [Suspect]
     Indication: HYPERTENSION
     Dosage: 80 MG VALS/12.5 MG HCT
     Dates: start: 20110706

REACTIONS (10)
  - POSTMENOPAUSAL HAEMORRHAGE [None]
  - GASTROINTESTINAL DISORDER [None]
  - DIARRHOEA [None]
  - VOMITING [None]
  - RENAL DISORDER [None]
  - GALLBLADDER DISORDER [None]
  - GASTROENTERITIS VIRAL [None]
  - ABDOMINAL PAIN UPPER [None]
  - VAGINAL INFECTION [None]
  - BLOOD PRESSURE INCREASED [None]
